FAERS Safety Report 11595173 (Version 2)
Quarter: 2016Q3

REPORT INFORMATION
  Report Type: Spontaneous
  Country: CN (occurrence: CN)
  Receive Date: 20151006
  Receipt Date: 20160715
  Transmission Date: 20161109
  Serious: Yes (Hospitalization, Other)
  Sender: FDA-Public Use
  Company Number: CN-BRISTOL-MYERS SQUIBB COMPANY-BMS-2015-066339

PATIENT
  Age: 75 Year
  Sex: Female

DRUGS (2)
  1. TRAMADOL. [Interacting]
     Active Substance: TRAMADOL
     Indication: MUSCULOSKELETAL PAIN
     Route: 065
  2. WARFARIN SODIUM. [Suspect]
     Active Substance: WARFARIN SODIUM
     Indication: ATRIAL FIBRILLATION
     Route: 065

REACTIONS (2)
  - Haemorrhage [Recovering/Resolving]
  - Drug interaction [Unknown]
